FAERS Safety Report 17432254 (Version 1)
Quarter: 2020Q1

REPORT INFORMATION
  Report Type: Other
  Country: CZ (occurrence: CZ)
  Receive Date: 20200218
  Receipt Date: 20200218
  Transmission Date: 20200409
  Serious: Yes (Other)
  Sender: FDA-Public Use
  Company Number: CZ-CELLTRION INC.-2020CZ019207

PATIENT

DRUGS (4)
  1. VIGANTOL [Concomitant]
     Dosage: 2 GGT EACH TWO DAYS
  2. METHOTREXAT [Concomitant]
     Active Substance: METHOTREXATE
     Dosage: 10 MG, 1/WEEK
  3. ACIDUM FOLICUM [Concomitant]
     Active Substance: FOLIC ACID
     Dosage: 1TBL PER WEEK
  4. REMSIMA [Suspect]
     Active Substance: INFLIXIMAB
     Indication: RHEUMATOID ARTHRITIS
     Dosage: 300 MG
     Route: 042
     Dates: start: 20170329, end: 20191113

REACTIONS (2)
  - Pustule [Unknown]
  - Basal cell carcinoma [Unknown]

NARRATIVE: CASE EVENT DATE: 201904
